FAERS Safety Report 9165795 (Version 3)
Quarter: 2013Q2

REPORT INFORMATION
  Report Type: Spontaneous
  Country: US (occurrence: US)
  Receive Date: 20130315
  Receipt Date: 20130513
  Transmission Date: 20140414
  Serious: No
  Sender: FDA-Public Use
  Company Number: US-PFIZER INC-2013065158

PATIENT
  Age: 68 Year
  Sex: Male

DRUGS (7)
  1. LYRICA [Suspect]
     Indication: DIABETIC NEUROPATHY
     Dosage: 225 MG, (ONE CAPSULE OF 150MG+ ONE CAPSULE OF 75MG), 2X/DAY
     Route: 048
     Dates: start: 201301, end: 2013
  2. LYRICA [Suspect]
     Dosage: 75 MG, 2X/DAY
     Route: 048
     Dates: start: 2013, end: 2013
  3. LYRICA [Suspect]
     Dosage: 125MG IN A DAY ( 75MG CAPSULE IN THE MORNING + 50MG CAPSULE AT NIGHT)
     Route: 048
     Dates: start: 2013
  4. LYRICA [Suspect]
     Dosage: 150 MG, ONCE A DAY
     Route: 048
     Dates: start: 201302
  5. LYRICA [Suspect]
     Dosage: 150 MG, 2X/DAY
     Route: 048
  6. LYRICA [Suspect]
     Dosage: 75 MG, 2X/DAY
     Route: 048
     Dates: start: 201302
  7. AMBIEN [Concomitant]
     Indication: INSOMNIA
     Dosage: ONCE A DAY AT NIGHT

REACTIONS (2)
  - Feeling abnormal [Unknown]
  - Somnolence [Recovered/Resolved]
